FAERS Safety Report 14088851 (Version 1)
Quarter: 2017Q4

REPORT INFORMATION
  Report Type: Spontaneous
  Country: FR (occurrence: FR)
  Receive Date: 20171013
  Receipt Date: 20171013
  Transmission Date: 20180321
  Serious: Yes (Other)
  Sender: FDA-Public Use
  Company Number: FR-IPSEN BIOPHARMACEUTICALS, INC.-2017-11569

PATIENT
  Age: 61 Year

DRUGS (1)
  1. SOMATULINE L.P. 60MG [Suspect]
     Active Substance: LANREOTIDE ACETATE
     Indication: NEUROENDOCRINE TUMOUR
     Dosage: 60 MG
     Route: 058

REACTIONS (4)
  - Diarrhoea [Recovered/Resolved]
  - Malignant neoplasm progression [Unknown]
  - Lymphadenopathy [Unknown]
  - Metastases to liver [Unknown]

NARRATIVE: CASE EVENT DATE: 201610
